FAERS Safety Report 17747532 (Version 5)
Quarter: 2024Q3

REPORT INFORMATION
  Report Type: Spontaneous
  Country: CA (occurrence: CA)
  Receive Date: 20200505
  Receipt Date: 20240705
  Transmission Date: 20241017
  Serious: Yes (Hospitalization, Other)
  Sender: BAUSCH AND LOMB
  Company Number: CA-BAUSCH-BL-2020-012898

PATIENT
  Age: 73 Year
  Sex: Female

DRUGS (35)
  1. METFORMIN [Suspect]
     Active Substance: METFORMIN HYDROCHLORIDE
     Indication: Product used for unknown indication
     Route: 065
  2. INFLIXIMAB [Suspect]
     Active Substance: INFLIXIMAB
     Indication: Colitis ulcerative
     Dosage: NOT SPECIFIED
     Route: 042
  3. INFLIXIMAB [Suspect]
     Active Substance: INFLIXIMAB
     Route: 042
  4. INFLIXIMAB [Suspect]
     Active Substance: INFLIXIMAB
     Route: 065
  5. PREDNISONE [Suspect]
     Active Substance: PREDNISONE
     Indication: Pruritus
     Route: 065
  6. PREDNISONE [Suspect]
     Active Substance: PREDNISONE
     Route: 048
  7. PREDNISONE [Suspect]
     Active Substance: PREDNISONE
     Route: 065
  8. PREMARIN [Suspect]
     Active Substance: ESTROGENS, CONJUGATED
     Indication: Product used for unknown indication
     Dosage: NOT SPECIFIED
     Route: 065
  9. QUINAPRIL HYDROCHLORIDE [Suspect]
     Active Substance: QUINAPRIL HYDROCHLORIDE
     Indication: Product used for unknown indication
     Route: 065
  10. QUINAPRIL HYDROCHLORIDE [Suspect]
     Active Substance: QUINAPRIL HYDROCHLORIDE
     Route: 065
  11. QUINAPRIL HYDROCHLORIDE [Suspect]
     Active Substance: QUINAPRIL HYDROCHLORIDE
     Dosage: QUINAPRIL
     Route: 065
  12. SYNTHROID [Suspect]
     Active Substance: LEVOTHYROXINE SODIUM
     Indication: Product used for unknown indication
     Dosage: NOT SPECIFIED
     Route: 065
  13. SYNTHROID [Suspect]
     Active Substance: LEVOTHYROXINE SODIUM
     Route: 065
  14. TOVIAZ [Suspect]
     Active Substance: FESOTERODINE FUMARATE
     Indication: Product used for unknown indication
     Dosage: EXTENDED RELEASE
     Route: 065
  15. TOVIAZ [Suspect]
     Active Substance: FESOTERODINE FUMARATE
     Dosage: EXTENDED RELEASE
     Route: 065
  16. TOVIAZ [Suspect]
     Active Substance: FESOTERODINE FUMARATE
     Route: 065
  17. ASACOL [Suspect]
     Active Substance: MESALAMINE
     Indication: Product used for unknown indication
     Route: 048
  18. ASACOL [Suspect]
     Active Substance: MESALAMINE
     Dosage: TABLET (ENTERIC COATED)
     Route: 048
  19. ASACOL [Suspect]
     Active Substance: MESALAMINE
     Dosage: 3 EVERY 1 DAYS
     Route: 048
  20. FELODIPINE [Suspect]
     Active Substance: FELODIPINE
     Indication: Product used for unknown indication
     Dosage: EXTENDED RELEASE
     Route: 065
  21. FELODIPINE [Suspect]
     Active Substance: FELODIPINE
     Dosage: MODIFIED RELEASE TABLET
     Route: 065
  22. FELODIPINE [Suspect]
     Active Substance: FELODIPINE
     Route: 065
  23. FELODIPINE [Suspect]
     Active Substance: FELODIPINE
     Dosage: EXTENDED RELEASE
     Route: 048
  24. FELODIPINE [Suspect]
     Active Substance: FELODIPINE
     Route: 065
  25. REMICADE [Suspect]
     Active Substance: INFLIXIMAB
     Indication: Colitis ulcerative
     Route: 042
  26. REMICADE [Suspect]
     Active Substance: INFLIXIMAB
     Route: 042
  27. ESTROGENS, CONJUGATED\MEDROGESTONE [Suspect]
     Active Substance: ESTROGENS, CONJUGATED\MEDROGESTONE
     Indication: Product used for unknown indication
     Dosage: CONJUGATED ESTROGENS/MEDROGESTONE
     Route: 065
  28. IMIPRAMINE [Concomitant]
     Active Substance: IMIPRAMINE
     Indication: Product used for unknown indication
     Dosage: IMIPRAMINE
     Route: 065
  29. IMIPRAMINE [Concomitant]
     Active Substance: IMIPRAMINE
     Dosage: IMIPRAMINE HYDROCHLORIDE
     Route: 065
  30. DULAGLUTIDE [Concomitant]
     Active Substance: DULAGLUTIDE
     Indication: Diabetes mellitus
     Route: 065
  31. METOCLOPRAMIDE HYDROCHLORIDE [Concomitant]
     Active Substance: METOCLOPRAMIDE HYDROCHLORIDE
     Indication: Pruritus
     Route: 065
  32. METOCLOPRAMIDE HYDROCHLORIDE [Concomitant]
     Active Substance: METOCLOPRAMIDE HYDROCHLORIDE
     Route: 065
  33. METOCLOPRAMIDE HYDROCHLORIDE [Concomitant]
     Active Substance: METOCLOPRAMIDE HYDROCHLORIDE
     Indication: Product used for unknown indication
     Route: 065
  34. CHLOROPYRAMINE HYDROCHLORIDE/IMIPRAMINE HYDROCHLORIDE [Concomitant]
     Indication: Product used for unknown indication
     Route: 065
  35. CHLOROPYRAMINE HYDROCHLORIDE [Concomitant]
     Active Substance: CHLOROPYRAMINE HYDROCHLORIDE
     Indication: Product used for unknown indication

REACTIONS (5)
  - Colitis ulcerative [Unknown]
  - Colitis [Unknown]
  - Decreased activity [Unknown]
  - Rectal haemorrhage [Unknown]
  - Frequent bowel movements [Unknown]
